FAERS Safety Report 9614334 (Version 1)
Quarter: 2013Q4

REPORT INFORMATION
  Report Type: Spontaneous
  Country: US (occurrence: US)
  Receive Date: 20131011
  Receipt Date: 20131011
  Transmission Date: 20140711
  Serious: No
  Sender: FDA-Public Use
  Company Number: US-JNJFOC-20131001745

PATIENT
  Age: 49 Year
  Sex: Female
  Weight: 79.83 kg

DRUGS (4)
  1. DURAGESIC [Suspect]
     Indication: PAIN
     Route: 062
     Dates: start: 1999
  2. DURAGESIC [Suspect]
     Indication: PAIN
     Route: 062
     Dates: start: 1999
  3. FENTANYL [Suspect]
     Indication: PAIN
     Route: 062
  4. DURAGESIC [Suspect]
     Indication: PAIN
     Dosage: 100 UG/HR + 75 UG/HR
     Route: 062

REACTIONS (5)
  - Wrong technique in drug usage process [Unknown]
  - Rash [Unknown]
  - Hyperhidrosis [Not Recovered/Not Resolved]
  - Product quality issue [Unknown]
  - Drug dose omission [Unknown]
